FAERS Safety Report 17402266 (Version 2)
Quarter: 2020Q1

REPORT INFORMATION
  Report Type: Report from Study
  Country: US (occurrence: US)
  Receive Date: 20200211
  Receipt Date: 20200318
  Transmission Date: 20200409
  Serious: No
  Sender: FDA-Public Use
  Company Number: US-SA-2020SA008777

PATIENT
  Age: 61 Year
  Sex: Male

DRUGS (3)
  1. DUPILUMAB [Suspect]
     Active Substance: DUPILUMAB
     Indication: NASAL POLYPS
  2. DUPILUMAB [Suspect]
     Active Substance: DUPILUMAB
     Indication: NASAL CONGESTION
  3. DUPILUMAB [Suspect]
     Active Substance: DUPILUMAB
     Indication: SINUS DISORDER
     Dosage: 300 MG, QOW
     Route: 058
     Dates: start: 20200113, end: 20200221

REACTIONS (9)
  - Feeling abnormal [Unknown]
  - Bone pain [Unknown]
  - Pruritus [Unknown]
  - Rash macular [Unknown]
  - Injection site pain [Unknown]
  - Urticaria [Unknown]
  - Paraesthesia [Unknown]
  - Eyelid irritation [Unknown]
  - Product use in unapproved indication [Unknown]

NARRATIVE: CASE EVENT DATE: 20200117
